FAERS Safety Report 18056699 (Version 1)
Quarter: 2020Q3

REPORT INFORMATION
  Report Type: Spontaneous
  Country: IN (occurrence: IN)
  Receive Date: 20200723
  Receipt Date: 20200723
  Transmission Date: 20201103
  Serious: Yes (Death, Life-Threatening, Other)
  Sender: FDA-Public Use
  Company Number: IN-SUN PHARMACEUTICAL INDUSTRIES LTD-2020R1-254089

PATIENT
  Age: 39 Year
  Sex: Male

DRUGS (1)
  1. FEBUGET 40 [Suspect]
     Active Substance: FEBUXOSTAT
     Indication: ARTHRALGIA
     Dosage: 40 MILLIGRAM, QD
     Route: 048
     Dates: start: 20191110, end: 20191212

REACTIONS (4)
  - Cerebral haemorrhage [Unknown]
  - Coma [Unknown]
  - Dizziness [Unknown]
  - Headache [Unknown]

NARRATIVE: CASE EVENT DATE: 20191212
